FAERS Safety Report 7411039-6 (Version None)
Quarter: 2011Q2

REPORT INFORMATION
  Report Type: 
  Country: None (occurrence: None)
  Receive Date: 20110404
  Receipt Date: 20110324
  Transmission Date: 20111010
  Serious: Yes (Hospitalization)
  Sender: FDA-Public Use
  Company Number: 2011-0879

PATIENT
  Age: 69 Year
  Sex: Male

DRUGS (8)
  1. FLUROCARTISONE (FLUDROCORTISONE) [Concomitant]
  2. GABAPENTIN [Concomitant]
  3. SINAMET (SINEMET) [Concomitant]
  4. APO-GO PFS (APO-GO) (APOMORPHINE HYDROCHLORIDE) (APOMORPHINE HYDROCHLO [Suspect]
     Indication: PARKINSON'S DISEASE
     Dosage: (50 MG, NOT REPORTED)
     Dates: start: 20100426
  5. CLONAZEPAM [Concomitant]
  6. DURAGESIC-100 [Concomitant]
  7. NUSEALS (ACETYLSALICYLIC ACID) [Concomitant]
  8. ENTACAPONE [Concomitant]

REACTIONS (2)
  - NODULE [None]
  - SKIN INDURATION [None]
